FAERS Safety Report 10207549 (Version 1)
Quarter: 2014Q2

REPORT INFORMATION
  Report Type: Spontaneous
  Country: US (occurrence: US)
  Receive Date: 20140530
  Receipt Date: 20140530
  Transmission Date: 20141212
  Serious: No
  Sender: FDA-Public Use
  Company Number: US-GLAXOSMITHKLINE-A1049212A

PATIENT
  Age: 66 Year
  Sex: Male

DRUGS (2)
  1. VENTOLIN [Suspect]
     Indication: CHRONIC OBSTRUCTIVE PULMONARY DISEASE
     Dosage: 2PUFF AS REQUIRED
     Route: 055
  2. ADVAIR [Concomitant]

REACTIONS (3)
  - Drug ineffective [Recovered/Resolved]
  - Overdose [Recovered/Resolved]
  - Product quality issue [Recovered/Resolved]
